FAERS Safety Report 5995165-4 (Version None)
Quarter: 2008Q4

REPORT INFORMATION
  Report Type: 
  Country: None (occurrence: None)
  Receive Date: 20081210
  Receipt Date: 20081126
  Transmission Date: 20090506
  Serious: Yes (Other)
  Sender: FDA-Public Use
  Company Number: 1000003033

PATIENT
  Age: 40 Year
  Sex: Female
  Weight: 64 kg

DRUGS (5)
  1. ESCITALOPRAM OXALATE [Suspect]
     Dosage: 100 MG (100 MG, ONCE) , ORAL
     Route: 048
     Dates: start: 20081126, end: 20081126
  2. DOXCYCLIN            (100 MILLIGRAM, TABLETS) [Suspect]
     Dosage: 2000 MG (2000 MG, ONCE), ORAL
     Route: 048
     Dates: start: 20081126, end: 20081126
  3. PARACETAMOL            (500 MILLIGRAM, TABLETS) [Suspect]
     Dosage: 5000 MG (5000 MG, ONCE), ORAL
     Route: 048
     Dates: start: 20081126, end: 20081126
  4. TETRAZEPAM STADA                   (50 MILLIGRAM, TABLETS) [Suspect]
     Dosage: 2500 MG (2500 MG, ONCE), ORAL
     Route: 048
     Dates: start: 20081126, end: 20081126
  5. ALCOHOL [Suspect]
     Dosage: HALF A BOTTLE OF HARD LIQUOR
     Route: 048
     Dates: start: 20081126, end: 20081126

REACTIONS (5)
  - ALCOHOL POISONING [None]
  - INTENTIONAL OVERDOSE [None]
  - SOMNOLENCE [None]
  - SUICIDE ATTEMPT [None]
  - TACHYCARDIA [None]
